FAERS Safety Report 15385598 (Version 1)
Quarter: 2018Q3

REPORT INFORMATION
  Report Type: Spontaneous
  Country: US (occurrence: US)
  Receive Date: 20180907
  Receipt Date: 20180907
  Transmission Date: 20181010
  Serious: No
  Sender: FDA-Public Use
  Company Number: None

PATIENT
  Age: 52 Year
  Sex: Female

DRUGS (1)
  1. CYCLOSPORINE CAP 100MG [Suspect]
     Active Substance: CYCLOSPORINE
     Indication: ACQUIRED COMPLEMENT DEFICIENCY DISEASE
     Dates: start: 201807

REACTIONS (3)
  - Infection [None]
  - Nasopharyngitis [None]
  - Multiple allergies [None]

NARRATIVE: CASE EVENT DATE: 20180906
